FAERS Safety Report 4881716-X (Version None)
Quarter: 2006Q1

REPORT INFORMATION
  Report Type: 
  Country: None (occurrence: None)
  Receive Date: 20060116
  Receipt Date: 20051223
  Transmission Date: 20060701
  Serious: Yes (Hospitalization)
  Sender: FDA-Public Use
  Company Number: CH-ROCHE-429757

PATIENT
  Age: 75 Year
  Sex: Female
  Weight: 53 kg

DRUGS (8)
  1. BONIVA [Suspect]
     Indication: OSTEOPOROSIS
     Route: 048
     Dates: start: 20051115, end: 20051115
  2. PREDNISONE [Suspect]
     Route: 048
     Dates: start: 20040615
  3. PREDNISONE [Suspect]
     Dosage: DOSE REDUCED.
     Route: 048
  4. COAPROVEL [Concomitant]
     Indication: ESSENTIAL HYPERTENSION
     Route: 048
     Dates: start: 20030615, end: 20051119
  5. ASPIRIN [Concomitant]
     Route: 048
     Dates: start: 20040615
  6. TENORMIN [Concomitant]
     Indication: CARDIAC IMAGING PROCEDURE ABNORMAL
     Route: 048
     Dates: start: 20030615
  7. TOREM [Concomitant]
     Route: 048
     Dates: start: 20040615, end: 20051119
  8. CALCIMAGON-D3 [Concomitant]
     Indication: OSTEOPOROSIS
     Dosage: GIVEN DAILY.
     Route: 048
     Dates: start: 20050615

REACTIONS (13)
  - ABDOMINAL PAIN [None]
  - CONDITION AGGRAVATED [None]
  - DIARRHOEA [None]
  - DISEASE PROGRESSION [None]
  - HEPATIC FUNCTION ABNORMAL [None]
  - HYPOCALCAEMIA [None]
  - HYPOKALAEMIA [None]
  - HYPOMAGNESAEMIA [None]
  - HYPOPHOSPHATAEMIA [None]
  - PANCREATIC DISORDER [None]
  - RENAL FAILURE [None]
  - VOMITING [None]
  - WEIGHT DECREASED [None]
